FAERS Safety Report 10435068 (Version 1)
Quarter: 2014Q3

REPORT INFORMATION
  Report Type: Spontaneous
  Country: US (occurrence: None)
  Receive Date: 20140815
  Receipt Date: 20140815
  Transmission Date: 20150326
  Serious: No
  Sender: FDA-Public Use
  Company Number: 2014TUS004963

PATIENT
  Age: 49 Year
  Sex: Female
  Weight: 73.5 kg

DRUGS (1)
  1. BRINTELLIX [Suspect]
     Active Substance: VORTIOXETINE HYDROBROMIDE
     Indication: MAJOR DEPRESSION
     Route: 048
     Dates: start: 201404

REACTIONS (2)
  - Weight increased [None]
  - Gastrointestinal disorder [None]

NARRATIVE: CASE EVENT DATE: 20140601
